FAERS Safety Report 13742438 (Version 2)
Quarter: 2017Q3

REPORT INFORMATION
  Report Type: Report from Study
  Country: US (occurrence: US)
  Receive Date: 20170711
  Receipt Date: 20170807
  Transmission Date: 20171127
  Serious: Yes (Hospitalization, Other)
  Sender: FDA-Public Use
  Company Number: US-BAYER-2017-120176

PATIENT
  Age: 78 Year
  Sex: Female

DRUGS (17)
  1. GABAPENTIN. [Concomitant]
     Active Substance: GABAPENTIN
  2. CYANOCOBALAMIN. [Interacting]
     Active Substance: CYANOCOBALAMIN
  3. STIVARGA [Suspect]
     Active Substance: REGORAFENIB
     Indication: HEPATOCELLULAR CARCINOMA
     Dosage: 120 MG DAILY DOSE
     Route: 048
     Dates: start: 2017, end: 2017
  4. COLCHICINE. [Concomitant]
     Active Substance: COLCHICINE
  5. BYSTOLIC [Concomitant]
     Active Substance: NEBIVOLOL HYDROCHLORIDE
  6. WARFARIN SODIUM. [Concomitant]
     Active Substance: WARFARIN SODIUM
  7. METOPROLOL SUCCINATE. [Concomitant]
     Active Substance: METOPROLOL SUCCINATE
  8. LIDOCAIN [Concomitant]
     Active Substance: LIDOCAINE
  9. STIVARGA [Suspect]
     Active Substance: REGORAFENIB
     Indication: MALIGNANT CONNECTIVE TISSUE NEOPLASM
     Dosage: 120 MG DAILY DOSE
     Route: 048
     Dates: start: 2017
  10. GLIPIZIDE. [Concomitant]
     Active Substance: GLIPIZIDE
  11. STIVARGA [Suspect]
     Active Substance: REGORAFENIB
     Indication: MALIGNANT CONNECTIVE TISSUE NEOPLASM
     Dosage: 160 MG, DAILY FOR 21 DAYS
     Route: 048
     Dates: start: 20170609, end: 2017
  12. BENICAR [Concomitant]
     Active Substance: OLMESARTAN MEDOXOMIL
  13. AMLODIPINE BESYLATE. [Concomitant]
     Active Substance: AMLODIPINE BESYLATE
  14. AMIODARONE HYDROCHLORIDE. [Concomitant]
     Active Substance: AMIODARONE HYDROCHLORIDE
  15. JANUVIA [Concomitant]
     Active Substance: SITAGLIPTIN PHOSPHATE
  16. METFORMIN HYDROCHLORIDE. [Concomitant]
     Active Substance: METFORMIN HYDROCHLORIDE
  17. SYNTHROID [Concomitant]
     Active Substance: LEVOTHYROXINE SODIUM

REACTIONS (11)
  - Pyrexia [Recovered/Resolved]
  - Fatigue [Recovered/Resolved]
  - Dizziness [Not Recovered/Not Resolved]
  - Abdominal pain upper [Not Recovered/Not Resolved]
  - Blood pressure increased [Recovered/Resolved]
  - Headache [Not Recovered/Not Resolved]
  - Blood pressure systolic increased [Not Recovered/Not Resolved]
  - Product use in unapproved indication [None]
  - Off label use [None]
  - Chills [Recovered/Resolved]
  - Hyperhidrosis [Not Recovered/Not Resolved]

NARRATIVE: CASE EVENT DATE: 201706
